FAERS Safety Report 8766814 (Version 1)
Quarter: 2012Q4

REPORT INFORMATION
  Report Type: 
  Country: DK (occurrence: GB)
  Receive Date: 20120904
  Receipt Date: 20120904
  Transmission Date: 20130627
  Serious: Yes (Other)
  Sender: FDA-Public Use
  Company Number: GB-FRI-1000038281

PATIENT
  Age: 32 Year
  Sex: Female

DRUGS (9)
  1. CITALOPRAM [Suspect]
     Indication: DEPRESSION
     Dosage: 20mg once daily
     Route: 048
     Dates: start: 20111004
  2. CHLORPROMAZINE [Suspect]
     Indication: ANXIETY
     Dosage: 25mg once daily
     Route: 048
     Dates: start: 20110922
  3. DIHYDROCODEINE [Suspect]
     Indication: PAIN
     Dosage: 60 mg
     Route: 048
     Dates: start: 20100315
  4. FLUOXETINE [Suspect]
     Indication: DEPRESSION
     Dosage: 60mg once daily
     Route: 048
     Dates: start: 20100621, end: 20111004
  5. OMEPRAZOLE [Suspect]
     Indication: DYSPEPSIA
     Dosage: 20mg once daily
     Route: 048
     Dates: start: 20080919
  6. PROPRANOLOL [Suspect]
     Indication: PALPITATIONS
     Dosage: 20 mg
     Route: 048
     Dates: start: 20090505
  7. PROPRANOLOL [Suspect]
     Indication: ANXIETY
  8. SEROQUEL XL [Suspect]
     Indication: ANXIETY
     Dosage: 400 mg
     Route: 048
     Dates: start: 20110323, end: 20110910
  9. SEROQUEL XL [Suspect]
     Indication: DEPRESSION

REACTIONS (2)
  - Pre-eclampsia [Unknown]
  - Pregnancy [Recovered/Resolved]
